FAERS Safety Report 4299102-2 (Version None)
Quarter: 2004Q1

REPORT INFORMATION
  Report Type: 
  Country: None (occurrence: None)
  Receive Date: 20040217
  Receipt Date: 20040204
  Transmission Date: 20041129
  Serious: Yes (Hospitalization)
  Sender: FDA-Public Use
  Company Number: 2004197854SE

PATIENT
  Age: 66 Year
  Sex: Male

DRUGS (13)
  1. LESTID (COLESTIPOL HYDROCHLORIDE) TABLET [Suspect]
     Indication: HYPERLIPIDAEMIA
     Dosage: 10 G, DAILY,ORAL
     Route: 048
     Dates: start: 20020201, end: 20031017
  2. FUROSEMIDE [Suspect]
     Indication: CARDIAC FAILURE
     Dosage: 500 MG, DAILY, ORAL
     Route: 048
     Dates: start: 20010901
  3. ALLOPURINOL [Concomitant]
  4. FERROUS SULFATE TAB [Concomitant]
  5. VITAMIN E [Concomitant]
  6. ALFACALCIDOL (ALFACALCIDOL) [Concomitant]
  7. POTASSIUM [Concomitant]
  8. CALCIUM CARBONATE [Concomitant]
  9. AMLODIPINE [Concomitant]
  10. RAMIPRIL [Concomitant]
  11. EPOETIN ALFA [Concomitant]
  12. DOXAZOSIN MESYLATE [Concomitant]
  13. PIOGLITAZON [Concomitant]

REACTIONS (6)
  - ATRIOVENTRICULAR BLOCK COMPLETE [None]
  - DRUG INTERACTION [None]
  - OEDEMA [None]
  - OEDEMA PERIPHERAL [None]
  - RENAL DISORDER [None]
  - SWELLING FACE [None]
